FAERS Safety Report 6716338-9 (Version None)
Quarter: 2010Q2

REPORT INFORMATION
  Report Type: 
  Country: None (occurrence: None)
  Receive Date: 20100506
  Receipt Date: 20100506
  Transmission Date: 20101027
  Serious: No
  Sender: FDA-Public Use
  Company Number: None

PATIENT
  Sex: Male
  Weight: 81.6 kg

DRUGS (8)
  1. NAFCILLIN [Suspect]
     Indication: STAPHYLOCOCCAL BACTERAEMIA
     Dosage: 2G Q4H IV
     Route: 042
     Dates: start: 20100205, end: 20100212
  2. ALPRAZOLAM [Concomitant]
  3. BISACODYL [Concomitant]
  4. BUPROPION HCL [Concomitant]
  5. BACLOFEN [Concomitant]
  6. CYCLOBENZAPRINE [Concomitant]
  7. OXYCODONE [Concomitant]
  8. PREGABALIN [Concomitant]

REACTIONS (5)
  - INFUSION RELATED REACTION [None]
  - MUSCLE SPASMS [None]
  - MUSCLE TWITCHING [None]
  - PRESYNCOPE [None]
  - VISION BLURRED [None]
